FAERS Safety Report 5457515-7 (Version None)
Quarter: 2007Q3

REPORT INFORMATION
  Report Type: 
  Country: None (occurrence: None)
  Receive Date: 20070918
  Receipt Date: 20070907
  Transmission Date: 20080115
  Serious: Yes (Other)
  Sender: FDA-Public Use
  Company Number: US-PFIZER INC-2007074932

PATIENT
  Sex: Female
  Weight: 42.727 kg

DRUGS (2)
  1. NORVASC [Suspect]
     Indication: HYPERTENSION
     Dosage: DAILY DOSE:2.5MG-FREQ:DAILY
  2. NORVASC [Suspect]
     Dosage: DAILY DOSE:5MG-FREQ:DAILY

REACTIONS (3)
  - HERNIA [None]
  - PALLOR [None]
  - PANCREATITIS [None]
